FAERS Safety Report 8533234 (Version 2)
Quarter: 2013Q3

REPORT INFORMATION
  Report Type: Report from Study
  Country: MX (occurrence: MX)
  Receive Date: 20120427
  Receipt Date: 20130718
  Transmission Date: 20140515
  Serious: Yes (Other)
  Sender: FDA-Public Use
  Company Number: PHHY2012MX034949

PATIENT
  Sex: Female
  Weight: 78 kg

DRUGS (2)
  1. EXFORGE [Suspect]
     Indication: HYPERTENSION
     Dosage: 1 DF (320 MG VALS/ 10 MG AMLO) DAILY
     Dates: start: 20120110, end: 201204
  2. PSEUDOEPHEDRINE [Concomitant]
     Dosage: UNK UKN, PRN

REACTIONS (2)
  - Fall [Unknown]
  - Ankle fracture [Unknown]
